FAERS Safety Report 6280254-X (Version None)
Quarter: 2009Q3

REPORT INFORMATION
  Report Type: 
  Country: None (occurrence: None)
  Receive Date: 20090723
  Receipt Date: 20090713
  Transmission Date: 20100115
  Serious: Yes (Other)
  Sender: FDA-Public Use
  Company Number: US-JNJCH-2009019049

PATIENT
  Age: 69 Year
  Sex: Male
  Weight: 100.2 kg

DRUGS (3)
  1. BENGAY VANISHING [Suspect]
     Indication: MYALGIA
     Dosage: TEXT:2 APPLICATIONS ONCE PER DAY
     Route: 061
     Dates: start: 20090629, end: 20090630
  2. AMLODIPINE [Concomitant]
     Indication: BLOOD PRESSURE
     Dosage: TEXT:UNSPECIFIED ONCE PER DAY
     Route: 048
  3. LISINOPRIL [Concomitant]
     Indication: BLOOD PRESSURE
     Dosage: TEXT:UNSPECIFIED ONCE PER DAY
     Route: 048

REACTIONS (5)
  - APPLICATION SITE ERYTHEMA [None]
  - APPLICATION SITE RASH [None]
  - DRUG INEFFECTIVE [None]
  - HYPERSENSITIVITY [None]
  - PRODUCT CONTAMINATION [None]
